FAERS Safety Report 7199329-6 (Version None)
Quarter: 2010Q4

REPORT INFORMATION
  Report Type: 
  Country: None (occurrence: None)
  Receive Date: 20101228
  Receipt Date: 20101222
  Transmission Date: 20110411
  Serious: Yes (Hospitalization)
  Sender: FDA-Public Use
  Company Number: AT-BRISTOL-MYERS SQUIBB COMPANY-15451107

PATIENT
  Age: 42 Year
  Sex: Male

DRUGS (3)
  1. AMOXICILLIN [Suspect]
     Indication: HELICOBACTER GASTRITIS
     Dosage: 2 TIMES 1
  2. CLARITHROMYCIN [Suspect]
     Indication: HELICOBACTER GASTRITIS
     Dosage: 2TIMES 1
  3. PANTOPRAZOLE [Suspect]
     Indication: GASTRITIS
     Dosage: 1 TIMES 1

REACTIONS (1)
  - ACUTE PSYCHOSIS [None]
